FAERS Safety Report 16280445 (Version 1)
Quarter: 2019Q2

REPORT INFORMATION
  Report Type: Report from Study
  Country: US (occurrence: US)
  Receive Date: 20190507
  Receipt Date: 20190507
  Transmission Date: 20190711
  Serious: Yes (Other)
  Sender: FDA-Public Use
  Company Number: US-BAYER-2018-194528

PATIENT
  Age: 80 Year
  Sex: Female
  Weight: 46.26 kg

DRUGS (22)
  1. CETIRIZINE HYDROCHLORIDE. [Concomitant]
     Active Substance: CETIRIZINE HYDROCHLORIDE
  2. ONDANSETRON HYDROCHLORIDE. [Concomitant]
     Active Substance: ONDANSETRON HYDROCHLORIDE
     Dosage: ORALLY DISINTEGRATING TAKE ONE PRIOR TO CHEMO TREATMENT
  3. UBIDECARENONE [Concomitant]
     Active Substance: UBIDECARENONE
  4. NEXAVAR [Suspect]
     Active Substance: SORAFENIB
     Indication: ACUTE MYELOID LEUKAEMIA
     Dosage: 400 MG, BID
     Route: 048
     Dates: start: 20181006
  5. NEXAVAR [Suspect]
     Active Substance: SORAFENIB
     Indication: ACUTE MYELOID LEUKAEMIA
     Dosage: 600 MG, QD
     Dates: start: 20190104, end: 2019
  6. DIPHENHYDRAMINE. [Concomitant]
     Active Substance: DIPHENHYDRAMINE
     Dosage: 12.5MG ELIXIR 50MG
  7. CIPROFLOXACIN HYDROCHLORIDE. [Concomitant]
     Active Substance: CIPROFLOXACIN HYDROCHLORIDE
     Dosage: 500 MG, QD
  8. CALCIUM [Concomitant]
     Active Substance: CALCIUM
     Dosage: TAKE 1 TABLET(S) BY MOUTH DAILY
     Route: 048
  9. VITAMIN D3 [Concomitant]
     Active Substance: CHOLECALCIFEROL
     Dosage: 1000 IU, QD
  10. CARVEDILOL. [Concomitant]
     Active Substance: CARVEDILOL
     Dosage: TAKE 1 TABLET(S) BY MOUTH BID
  11. NEXAVAR [Suspect]
     Active Substance: SORAFENIB
     Indication: ACUTE MYELOID LEUKAEMIA
     Dosage: 400 MG, QOD
     Route: 048
     Dates: start: 201810, end: 201810
  12. FIBER [Concomitant]
     Active Substance: PSYLLIUM HUSK
  13. LEVOXYL [Concomitant]
     Active Substance: LEVOTHYROXINE SODIUM
     Dosage: 1 TABLET(S) BY MOUTH.DAILY
  14. NEXAVAR [Suspect]
     Active Substance: SORAFENIB
     Indication: ACUTE MYELOID LEUKAEMIA
     Dosage: UNK
     Dates: start: 201811, end: 2018
  15. ZOCOR [Concomitant]
     Active Substance: SIMVASTATIN
  16. FLUCONAZOLE. [Concomitant]
     Active Substance: FLUCONAZOLE
     Dosage: 200 MG, QD
  17. NEXAVAR [Suspect]
     Active Substance: SORAFENIB
     Indication: ACUTE MYELOID LEUKAEMIA
     Dosage: 400 MG, QD
     Route: 048
     Dates: start: 20181019, end: 2018
  18. NEXAVAR [Suspect]
     Active Substance: SORAFENIB
     Indication: ACUTE MYELOID LEUKAEMIA
     Dosage: 400 MG, QD
     Dates: start: 20181207
  19. 5-AZACYTIDINE [Concomitant]
     Active Substance: AZACITIDINE
     Dosage: UNK
     Dates: end: 20181212
  20. ALUMINIUM AND MAGNESIUM [Concomitant]
  21. PRO BIOTIC BLEND [Concomitant]
     Active Substance: BIFIDOBACTERIUM SPP.\BIFIDOBACTERIUM LONGUM\LACTOBACILLUS ACIDOPHILUS
  22. CYANOCOBALAMIN. [Concomitant]
     Active Substance: CYANOCOBALAMIN

REACTIONS (35)
  - Dyspnoea [Recovered/Resolved]
  - Diarrhoea [Recovered/Resolved]
  - Essential hypertension [None]
  - Neutropenia [None]
  - Cardiomyopathy [None]
  - Pulmonary hypertension [Recovered/Resolved]
  - Dyspnoea [None]
  - Inappropriate schedule of product administration [None]
  - Product use in unapproved indication [None]
  - Cardiac failure congestive [Recovered/Resolved]
  - Ejection fraction decreased [Recovered/Resolved]
  - Rash [Unknown]
  - Off label use [None]
  - Central venous pressure increased [Recovered/Resolved]
  - Pleural effusion [Recovered/Resolved]
  - Hypokinesia [None]
  - Blood cholesterol increased [None]
  - Adverse drug reaction [None]
  - Arteriosclerosis coronary artery [None]
  - Type V hyperlipidaemia [None]
  - Anaemia of malignant disease [None]
  - Thrombocytopenia [None]
  - Right ventricular systolic pressure increased [Recovered/Resolved]
  - Oedema peripheral [Recovered/Resolved]
  - Chest discomfort [None]
  - Mitral valve incompetence [Recovered/Resolved]
  - Dehydration [None]
  - Weight decreased [None]
  - Pruritus [Recovered/Resolved]
  - Pain in extremity [None]
  - Hypertensive heart disease [None]
  - Peripheral swelling [Recovered/Resolved]
  - Atrial enlargement [Recovered/Resolved]
  - Gait inability [Recovered/Resolved]
  - Rash maculo-papular [Recovered/Resolved]

NARRATIVE: CASE EVENT DATE: 201810
